FAERS Safety Report 22524251 (Version 1)
Quarter: 2023Q2

REPORT INFORMATION
  Report Type: Spontaneous
  Country: KR (occurrence: KR)
  Receive Date: 20230606
  Receipt Date: 20230606
  Transmission Date: 20230722
  Serious: Yes (Hospitalization, Other)
  Sender: FDA-Public Use
  Company Number: KR-BAXTER-2023BAX023065

PATIENT
  Age: 60 Year
  Sex: Male

DRUGS (2)
  1. SUPRANE [Suspect]
     Active Substance: DESFLURANE
     Indication: General anaesthesia
     Route: 065
  2. REMIFENTANIL [Suspect]
     Active Substance: REMIFENTANIL
     Indication: General anaesthesia
     Route: 065

REACTIONS (2)
  - Delayed recovery from anaesthesia [Recovered/Resolved]
  - Generalised tonic-clonic seizure [Recovered/Resolved]
